FAERS Safety Report 13846550 (Version 1)
Quarter: 2017Q3

REPORT INFORMATION
  Report Type: Spontaneous
  Country: US (occurrence: US)
  Receive Date: 20170808
  Receipt Date: 20170808
  Transmission Date: 20171127
  Serious: No
  Sender: FDA-Public Use
  Company Number: US-SUNOVION-2017SUN001630

PATIENT
  Sex: Female

DRUGS (3)
  1. LEVALBUTEROL TARTRATE. [Suspect]
     Active Substance: LEVALBUTEROL TARTRATE
     Dosage: UNK
     Route: 055
  2. BUDESONIDE. [Suspect]
     Active Substance: BUDESONIDE
     Dosage: UNK
  3. BROVANA [Concomitant]
     Active Substance: ARFORMOTEROL TARTRATE
     Dosage: UNK

REACTIONS (1)
  - Drug ineffective [Unknown]
